FAERS Safety Report 10951188 (Version 2)
Quarter: 2015Q2

REPORT INFORMATION
  Report Type: Spontaneous
  Country: US (occurrence: US)
  Receive Date: 20150324
  Receipt Date: 20150428
  Transmission Date: 20150821
  Serious: Yes (Other)
  Sender: FDA-Public Use
  Company Number: US-BAYER-2015-060451

PATIENT
  Age: 46 Year
  Sex: Female
  Weight: 53.52 kg

DRUGS (3)
  1. MIRENA [Suspect]
     Active Substance: LEVONORGESTREL
     Indication: CONTRACEPTION
     Dosage: 20 MCG/24HR, CONT
     Route: 015
     Dates: end: 20150106
  2. MIRENA [Suspect]
     Active Substance: LEVONORGESTREL
     Indication: MENORRHAGIA
     Dosage: 20 MCG/24HR, CONT
     Route: 015
     Dates: start: 20150106, end: 20150318
  3. LIDOCAINE. [Concomitant]
     Active Substance: LIDOCAINE
     Indication: INTRA-UTERINE CONTRACEPTIVE DEVICE INSERTION
     Dosage: UNK
     Dates: start: 20150106

REACTIONS (6)
  - Vaginal haemorrhage [None]
  - Device dislocation [None]
  - Dysmenorrhoea [None]
  - Genital haemorrhage [None]
  - Abdominal pain [None]
  - Embedded device [None]

NARRATIVE: CASE EVENT DATE: 2015
